FAERS Safety Report 4943055-8 (Version None)
Quarter: 2006Q1

REPORT INFORMATION
  Report Type: 
  Country: None (occurrence: None)
  Receive Date: 20060309
  Receipt Date: 20060126
  Transmission Date: 20060701
  Serious: Yes (Hospitalization)
  Sender: FDA-Public Use
  Company Number: B0407271A

PATIENT
  Age: 43 Year
  Sex: Male
  Weight: 121 kg

DRUGS (4)
  1. FLUTICASONE PROPIONATE [Suspect]
     Indication: ASTHMA
     Dosage: INHALED
     Route: 055
     Dates: start: 20030203
  2. PRANLUKAST (PRANLUKAST) [Suspect]
     Indication: ASTHMA
     Dosage: ORAL
     Route: 048
     Dates: start: 20030801
  3. THEOPHYLLINE [Concomitant]
  4. TULOBUTEROL HYDROCHLORIDE [Concomitant]

REACTIONS (5)
  - ABDOMINAL PAIN UPPER [None]
  - ALLERGIC GRANULOMATOUS ANGIITIS [None]
  - HYPOAESTHESIA [None]
  - LUNG CONSOLIDATION [None]
  - PLATELET COUNT INCREASED [None]
